FAERS Safety Report 22398780 (Version 2)
Quarter: 2023Q4

REPORT INFORMATION
  Report Type: Spontaneous
  Country: US (occurrence: US)
  Receive Date: 20230602
  Receipt Date: 20231127
  Transmission Date: 20240109
  Serious: Yes (Other)
  Sender: FDA-Public Use
  Company Number: US-BAYER-2023A074315

PATIENT
  Age: 27 Year
  Sex: Female
  Weight: 68.027 kg

DRUGS (1)
  1. KYLEENA [Suspect]
     Active Substance: LEVONORGESTREL
     Indication: Contraception
     Dosage: 17.5?G/DAY
     Route: 015
     Dates: start: 20230306, end: 20230503

REACTIONS (4)
  - Pregnancy with contraceptive device [None]
  - Abortion missed [None]
  - Haemorrhage in pregnancy [None]
  - Drug ineffective [None]

NARRATIVE: CASE EVENT DATE: 20230401
